FAERS Safety Report 9058279 (Version 1)
Quarter: 2013Q1

REPORT INFORMATION
  Report Type: Spontaneous
  Country: US (occurrence: US)
  Receive Date: 20130211
  Receipt Date: 20130211
  Transmission Date: 20140127
  Serious: Yes (Hospitalization, Other)
  Sender: FDA-Public Use
  Company Number: US-AMGEN-USASP2013007564

PATIENT
  Age: 70 Year
  Sex: Female

DRUGS (1)
  1. ENBREL [Suspect]
     Indication: ARTHRITIS
     Dosage: 50 MG, QWK
     Dates: start: 20120123, end: 201211

REACTIONS (6)
  - Malignant neoplasm of eye [Recovered/Resolved]
  - Squamous cell carcinoma of head and neck [Recovered/Resolved]
  - Splenic artery aneurysm [Recovered/Resolved]
  - Anaesthetic complication [Recovered/Resolved]
  - Dry eye [Recovered/Resolved]
  - Back pain [Recovered/Resolved]
